FAERS Safety Report 11079972 (Version 4)
Quarter: 2015Q3

REPORT INFORMATION
  Report Type: Spontaneous
  Country: US (occurrence: US)
  Receive Date: 20150430
  Receipt Date: 20150707
  Transmission Date: 20151125
  Serious: Yes (Other)
  Sender: FDA-Public Use
  Company Number: US-BAYER-2015-154044

PATIENT
  Age: 68 Year
  Sex: Female
  Weight: 64.9 kg

DRUGS (7)
  1. REMODULIN [Suspect]
     Active Substance: TREPROSTINIL
     Indication: PULMONARY HYPERTENSION
     Dosage: 0.120 ?G/KG
     Route: 058
     Dates: start: 20090903
  2. ADEMPAS [Suspect]
     Active Substance: RIOCIGUAT
     Indication: PULMONARY HYPERTENSION
     Dosage: UNK
     Route: 048
     Dates: start: 20150324, end: 20150327
  3. COUMADIN [Concomitant]
     Active Substance: WARFARIN SODIUM
  4. REMODULIN [Suspect]
     Active Substance: TREPROSTINIL
     Indication: PULMONARY HYPERTENSION
     Dosage: 0.120 ?G/KG
     Route: 058
     Dates: start: 20071226
  5. ADEMPAS [Suspect]
     Active Substance: RIOCIGUAT
     Indication: PULMONARY HYPERTENSION
     Dosage: UNK
     Route: 048
     Dates: start: 20150329
  6. REMODULIN [Suspect]
     Active Substance: TREPROSTINIL
     Indication: PULMONARY HYPERTENSION
     Dosage: 0.120 ?G/KG
     Route: 058
  7. OPSUMIT [Concomitant]
     Active Substance: MACITENTAN

REACTIONS (10)
  - Injection site swelling [Unknown]
  - Abdominal pain upper [Unknown]
  - Nausea [Unknown]
  - Injection site erythema [Unknown]
  - Infusion site discolouration [Unknown]
  - Tendonitis [Unknown]
  - Localised infection [None]
  - Infusion site pain [Unknown]
  - Diarrhoea [Unknown]
  - Haemoptysis [Unknown]

NARRATIVE: CASE EVENT DATE: 201502
